FAERS Safety Report 19014421 (Version 1)
Quarter: 2021Q1

REPORT INFORMATION
  Report Type: Spontaneous
  Country: US (occurrence: US)
  Receive Date: 20210317
  Receipt Date: 20210317
  Transmission Date: 20210420
  Serious: Yes (Other)
  Sender: FDA-Public Use
  Company Number: US-STRIDES ARCOLAB LIMITED-2021SP000491

PATIENT
  Age: 43 Year
  Sex: Female

DRUGS (8)
  1. MYCOPHENOLATE MOFETIL. [Suspect]
     Active Substance: MYCOPHENOLATE MOFETIL
     Indication: PANCREAS TRANSPLANT
     Dosage: 250 MILLIGRAM, BID
     Route: 065
  2. ATG [ANTITHYMOCYTE IMMUNOGLOBULIN] [Suspect]
     Active Substance: LAPINE T-LYMPHOCYTE IMMUNE GLOBULIN
     Indication: RENAL TRANSPLANT
     Dosage: UNK
     Route: 065
  3. ATG [ANTITHYMOCYTE IMMUNOGLOBULIN] [Suspect]
     Active Substance: LAPINE T-LYMPHOCYTE IMMUNE GLOBULIN
     Indication: PANCREAS TRANSPLANT
  4. PREDNISOLONE. [Suspect]
     Active Substance: PREDNISOLONE
     Indication: PANCREAS TRANSPLANT
     Dosage: 5 MILLIGRAM PER DAY
     Route: 065
  5. TACROLIMUS. [Suspect]
     Active Substance: TACROLIMUS
     Indication: PANCREAS TRANSPLANT
     Dosage: UNK
     Route: 065
  6. TACROLIMUS. [Suspect]
     Active Substance: TACROLIMUS
     Indication: RENAL TRANSPLANT
     Dosage: 3?4 NANOGRAM PER MILLLIITER
     Route: 065
  7. PREDNISOLONE. [Suspect]
     Active Substance: PREDNISOLONE
     Indication: RENAL TRANSPLANT
     Dosage: 10 MILLIGRAM DAILY
     Route: 065
  8. MYCOPHENOLATE MOFETIL. [Suspect]
     Active Substance: MYCOPHENOLATE MOFETIL
     Indication: RENAL TRANSPLANT
     Dosage: 500 MILLIGRAM, BID
     Route: 065

REACTIONS (9)
  - Varicella zoster virus infection [Unknown]
  - Cytomegalovirus colitis [Unknown]
  - Pneumocystis jirovecii pneumonia [Unknown]
  - Peritonitis [Unknown]
  - Cytomegalovirus viraemia [Unknown]
  - Bronchopulmonary aspergillosis [Unknown]
  - Parvovirus infection [Unknown]
  - Chronic graft versus host disease [Unknown]
  - Intestinal ischaemia [Unknown]
